FAERS Safety Report 5683307-X (Version None)
Quarter: 2008Q1

REPORT INFORMATION
  Report Type: 
  Country: None (occurrence: None)
  Receive Date: 20080327
  Receipt Date: 20080315
  Transmission Date: 20080703
  Serious: Yes (Other)
  Sender: FDA-Public Use
  Company Number: US-PFIZER INC-2008011155

PATIENT
  Sex: Female
  Weight: 63.5 kg

DRUGS (3)
  1. DILANTIN [Suspect]
     Indication: CEREBRAL HAEMORRHAGE
     Route: 048
  2. DILANTIN [Suspect]
     Indication: ANEURYSM
  3. ZESTRIL [Concomitant]
     Indication: HYPERTENSION

REACTIONS (12)
  - BALANCE DISORDER [None]
  - CHILLS [None]
  - EYELID PTOSIS [None]
  - FATIGUE [None]
  - HOT FLUSH [None]
  - INSOMNIA [None]
  - OEDEMA PERIPHERAL [None]
  - PALPITATIONS [None]
  - PHOTOSENSITIVITY REACTION [None]
  - RASH MACULAR [None]
  - SINUSITIS [None]
  - VISION BLURRED [None]
